FAERS Safety Report 9319488 (Version 16)
Quarter: 2017Q1

REPORT INFORMATION
  Report Type: Spontaneous
  Country: US (occurrence: US)
  Receive Date: 20130530
  Receipt Date: 20170123
  Transmission Date: 20170429
  Serious: Yes (Hospitalization, Other)
  Sender: FDA-Public Use
  Company Number: US-GLAXOSMITHKLINE-A0990786A

PATIENT
  Age: 74 Year
  Sex: Male

DRUGS (21)
  1. FLOLAN [Suspect]
     Active Substance: EPOPROSTENOL SODIUM
     Indication: COR PULMONALE CHRONIC
     Dosage: UNK UNK, U
     Dates: start: 2001
  2. FLOLAN [Suspect]
     Active Substance: EPOPROSTENOL SODIUM
     Dosage: 26 NG/KG/MIN CONTINUOUSLY
     Dates: start: 20140807
  3. FLOLAN [Suspect]
     Active Substance: EPOPROSTENOL SODIUM
     Dosage: 24 NG/KG/MIN CONTINUOUS
     Route: 042
  4. FLOLAN [Suspect]
     Active Substance: EPOPROSTENOL SODIUM
     Dosage: 22 DF, UNK
     Route: 042
     Dates: start: 20140807
  5. FLOLAN [Suspect]
     Active Substance: EPOPROSTENOL SODIUM
     Dosage: 30 NG/KG/MIN CONTINUOUS
     Route: 042
  6. BUMEX [Suspect]
     Active Substance: BUMETANIDE
     Indication: DIURETIC THERAPY
  7. REVATIO [Concomitant]
     Active Substance: SILDENAFIL CITRATE
  8. COUMADIN [Concomitant]
     Active Substance: WARFARIN SODIUM
  9. FLOLAN [Suspect]
     Active Substance: EPOPROSTENOL SODIUM
     Indication: PULMONARY HYPERTENSION
     Dosage: UNK
     Dates: start: 20160804
  10. ADEMPAS [Concomitant]
     Active Substance: RIOCIGUAT
  11. FLOLAN [Suspect]
     Active Substance: EPOPROSTENOL SODIUM
     Dosage: UNK
     Dates: start: 20061023
  12. FLOLAN [Suspect]
     Active Substance: EPOPROSTENOL SODIUM
     Dosage: UNK
     Dates: start: 20061023
  13. FLOLAN [Suspect]
     Active Substance: EPOPROSTENOL SODIUM
     Dosage: UNK
  14. DILTIAZEM. [Concomitant]
     Active Substance: DILTIAZEM
  15. FLOLAN [Suspect]
     Active Substance: EPOPROSTENOL SODIUM
     Dosage: UNK
     Dates: start: 20061023
  16. FLOLAN [Suspect]
     Active Substance: EPOPROSTENOL SODIUM
     Dosage: 30 NG/KG/MIN CONTINUOUSLY
     Route: 042
  17. FLOLAN [Suspect]
     Active Substance: EPOPROSTENOL SODIUM
     Indication: PULMONARY HYPERTENSION
     Dosage: 19 NG/KG/MIN, CONCENTRATION 30,000 NG/ML, PUMP RATE 88 ML/DAY, VIAL STRENGTH 1.5 MG2 NG/KG/MIN,[...]
     Route: 042
     Dates: start: 20061023
  18. FLOLAN [Suspect]
     Active Substance: EPOPROSTENOL SODIUM
     Dosage: UNK
     Dates: start: 20061023
  19. FLOLAN [Suspect]
     Active Substance: EPOPROSTENOL SODIUM
     Dosage: 26 NG/KG/MIN CONTINUOUSLY
  20. FLOLAN [Suspect]
     Active Substance: EPOPROSTENOL SODIUM
     Dosage: 30 NG/KG/MIN CONTINUOUSLY
     Dates: start: 20140807
  21. WARFARIN [Concomitant]
     Active Substance: WARFARIN

REACTIONS (34)
  - Pseudomonas infection [Unknown]
  - Device dislocation [Unknown]
  - Fatigue [Recovered/Resolved]
  - Anaemia [Unknown]
  - Nervousness [Unknown]
  - Drug intolerance [Unknown]
  - Large intestinal haemorrhage [Unknown]
  - Ulcer [Unknown]
  - Dehydration [Recovered/Resolved]
  - Post procedural haemorrhage [Recovered/Resolved]
  - Bacterial infection [Unknown]
  - Angiopathy [Unknown]
  - Transfusion [Unknown]
  - Pallor [Unknown]
  - Haemorrhage [Unknown]
  - Intestinal haemorrhage [Recovered/Resolved]
  - Catheter site discharge [Unknown]
  - Catheter site erythema [Unknown]
  - Gastric infection [Unknown]
  - Gastrointestinal infection [Unknown]
  - Device issue [Unknown]
  - Gastrointestinal disorder [Unknown]
  - Blood pressure abnormal [Recovered/Resolved]
  - Injection site infection [Recovered/Resolved]
  - Diverticulitis [Unknown]
  - Ear infection [Not Recovered/Not Resolved]
  - Asthenia [Recovered/Resolved]
  - Pain in jaw [Not Recovered/Not Resolved]
  - Feeling abnormal [Unknown]
  - Malaise [Recovered/Resolved]
  - Flushing [Unknown]
  - Central venous catheterisation [Unknown]
  - Coagulopathy [Unknown]
  - Palpitations [Recovering/Resolving]

NARRATIVE: CASE EVENT DATE: 20120816
